FAERS Safety Report 14332084 (Version 1)
Quarter: 2017Q4

REPORT INFORMATION
  Report Type: Spontaneous
  Country: CA (occurrence: CA)
  Receive Date: 20171227
  Receipt Date: 20171227
  Transmission Date: 20180321
  Serious: Yes (Other)
  Sender: FDA-Public Use
  Company Number: None

PATIENT
  Sex: Female
  Weight: 9.5 kg

DRUGS (4)
  1. HYDROCORTISONE. [Suspect]
     Active Substance: HYDROCORTISONE
     Indication: ECZEMA
     Dosage: STRENGTH HYDROCORTISONE 1% G GRAM(S)?QUANTITY:1 TEASPOON(S);?
     Route: 061
     Dates: start: 20160501, end: 20160603
  2. KIDS MULTIVITAMINS [Concomitant]
  3. EPIPEN [Concomitant]
     Active Substance: EPINEPHRINE
  4. ATARAX [Concomitant]
     Active Substance: HYDROXYZINE HYDROCHLORIDE

REACTIONS (6)
  - Skin burning sensation [None]
  - Drug withdrawal syndrome [None]
  - Erythema [None]
  - Eczema [None]
  - Skin exfoliation [None]
  - Weight decreased [None]

NARRATIVE: CASE EVENT DATE: 20160603
